FAERS Safety Report 13381831 (Version 2)
Quarter: 2017Q1

REPORT INFORMATION
  Report Type: Spontaneous
  Country: US (occurrence: US)
  Receive Date: 20170329
  Receipt Date: 20170329
  Transmission Date: 20170429
  Serious: No
  Sender: FDA-Public Use
  Company Number: ALCN2017US002229

PATIENT
  Sex: Female

DRUGS (1)
  1. PAZEO [Suspect]
     Active Substance: OLOPATADINE HYDROCHLORIDE
     Indication: EYE PRURITUS
     Dosage: 1 GTT, QD
     Route: 047
     Dates: start: 20170316, end: 20170324

REACTIONS (3)
  - Ocular hyperaemia [Not Recovered/Not Resolved]
  - Eye pain [Not Recovered/Not Resolved]
  - Swelling face [Not Recovered/Not Resolved]

NARRATIVE: CASE EVENT DATE: 20170316
